FAERS Safety Report 7501579-3 (Version None)
Quarter: 2011Q2

REPORT INFORMATION
  Report Type: 
  Country: None (occurrence: None)
  Receive Date: 20110524
  Receipt Date: 20110512
  Transmission Date: 20111010
  Serious: Yes (Hospitalization, Other)
  Sender: FDA-Public Use
  Company Number: US-WATSON-2011-06590

PATIENT
  Sex: Female
  Weight: 70 kg

DRUGS (2)
  1. PREDNISONE [Suspect]
     Indication: CHRONIC OBSTRUCTIVE PULMONARY DISEASE
     Dosage: VARIOUS DOSAGES
     Route: 048
     Dates: start: 20091001, end: 20100601
  2. PREDNISONE [Suspect]
     Indication: RESPIRATORY DISORDER
     Dosage: VARIOUS DOSAGES, ON AND OFF
     Route: 048
     Dates: start: 20050101, end: 20091001

REACTIONS (10)
  - GASTRIC DISORDER [None]
  - OEDEMA PERIPHERAL [None]
  - PAIN [None]
  - DEEP VEIN THROMBOSIS [None]
  - ARTHRALGIA [None]
  - HIP ARTHROPLASTY [None]
  - OSTEONECROSIS [None]
  - WEIGHT INCREASED [None]
  - CROHN'S DISEASE [None]
  - CUSHINGOID [None]
